FAERS Safety Report 22088403 (Version 2)
Quarter: 2023Q1

REPORT INFORMATION
  Report Type: Spontaneous
  Country: DE (occurrence: None)
  Receive Date: 20230313
  Receipt Date: 20230324
  Transmission Date: 20230417
  Serious: Yes (Hospitalization)
  Sender: FDA-Public Use
  Company Number: DE-ROCHE-3302102

PATIENT
  Sex: Male
  Weight: 2.68 kg

DRUGS (2)
  1. OCREVUS [Suspect]
     Active Substance: OCRELIZUMAB
     Indication: Product used for unknown indication
     Dosage: CHILD EXPOSED IN UTERO SO TRANSPLACENTAL ROUTE TAKEN
     Route: 064
     Dates: start: 20181002
  2. OCREVUS [Suspect]
     Active Substance: OCRELIZUMAB
     Dosage: ADMINISTERED PRECONCEPTION, LAST DATE OF DOSE 25/APR/2022 ??CHILD EXPOSED IN UTERO SO TRANSPLACENTAL
     Route: 064
     Dates: start: 20181002, end: 20220425

REACTIONS (4)
  - Neonatal infection [Recovered/Resolved]
  - Respiratory distress [Recovered/Resolved]
  - Interleukin level increased [Recovered/Resolved]
  - Foetal exposure during pregnancy [Unknown]
